FAERS Safety Report 5818544-4 (Version None)
Quarter: 2008Q3

REPORT INFORMATION
  Report Type: 
  Country: None (occurrence: None)
  Receive Date: 20080718
  Receipt Date: 20080709
  Transmission Date: 20090109
  Serious: Yes (Hospitalization)
  Sender: FDA-Public Use
  Company Number: CLOF-1000178

PATIENT
  Age: 60 Year
  Sex: Female
  Weight: 87.6 kg

DRUGS (3)
  1. CLOLAR [Suspect]
     Indication: ACUTE MYELOID LEUKAEMIA
     Dosage: 53 MG, QDX5, INTRAVENOUS
     Route: 042
     Dates: start: 20080319, end: 20080323
  2. BUSULFAN (BUSULFAN) [Suspect]
     Indication: ACUTE MYELOID LEUKAEMIA
     Dosage: 191 MG, QD, INTRAVENOUS; 110 MG, QD, INTRAVENOUS
     Route: 042
     Dates: start: 20080320, end: 20080321
  3. BUSULFAN (BUSULFAN) [Suspect]
     Indication: ACUTE MYELOID LEUKAEMIA
     Dosage: 191 MG, QD, INTRAVENOUS; 110 MG, QD, INTRAVENOUS
     Route: 042
     Dates: start: 20080322, end: 20080323

REACTIONS (19)
  - ASCITES [None]
  - CHILLS [None]
  - DEEP VEIN THROMBOSIS [None]
  - DIARRHOEA [None]
  - FEELING COLD [None]
  - GRAFT VERSUS HOST DISEASE [None]
  - HAEMANGIOMA [None]
  - HAEMOSIDEROSIS [None]
  - HEPATIC CYST [None]
  - HYPERGLYCAEMIA [None]
  - HYPERMAGNESAEMIA [None]
  - INFECTION [None]
  - MALAISE [None]
  - ORAL CANDIDIASIS [None]
  - PORTAL HYPERTENSION [None]
  - PROTHROMBIN TIME PROLONGED [None]
  - THROMBOCYTOPENIA [None]
  - VENOOCCLUSIVE LIVER DISEASE [None]
  - WEIGHT INCREASED [None]
